FAERS Safety Report 19771461 (Version 1)
Quarter: 2021Q3

REPORT INFORMATION
  Report Type: Spontaneous
  Country: DE (occurrence: DE)
  Receive Date: 20210901
  Receipt Date: 20210901
  Transmission Date: 20211014
  Serious: Yes (Death, Life-Threatening, Hospitalization, Other)
  Sender: FDA-Public Use
  Company Number: DE-MYLANLABS-2021M1057544

PATIENT
  Age: 16 Year
  Sex: Male

DRUGS (8)
  1. DEXAMETHASONE. [Suspect]
     Active Substance: DEXAMETHASONE
     Indication: BURKITT^S LYMPHOMA STAGE II
     Dosage: 4 MG UNIT DOSE: 00000004 OR RANGE (LOW TO HI NULL TO NULL MG FREQUWNCY 001 EVERY 01 NO DATA
     Route: 037
  2. CYTARABINE. [Suspect]
     Active Substance: CYTARABINE
     Indication: BURKITT^S LYMPHOMA STAGE II
     Dosage: 40 MG UNIT DOSE: 00000004 OR RANGE (LOW TO HI NULL TO NULL MG FREQUWNCY 001 EVERY 01 NO DATA
     Route: 037
  3. METHOTREXATE. [Suspect]
     Active Substance: METHOTREXATE
     Dosage: 6 GRAM
     Route: 042
  4. IFOSFAMIDE. [Concomitant]
     Active Substance: IFOSFAMIDE
     Dosage: 1.6 GRAM (1.6 G (D 5?9)
     Route: 042
  5. METHOTREXATE. [Suspect]
     Active Substance: METHOTREXATE
     Indication: BURKITT^S LYMPHOMA
     Dosage: 15 MILLIGRAM
     Route: 037
  6. PREDNISOLONE. [Suspect]
     Active Substance: PREDNISOLONE
     Indication: PRODUCT USED FOR UNKNOWN INDICATION
     Dosage: 120 MILLIGRAM (120 MG (D 1?4)
     Route: 042
  7. VINCRISTINE [Concomitant]
     Active Substance: VINCRISTINE
     Dosage: 2 MILLIGRAM (2 MG (D 5)
     Route: 042
  8. CYCLOPHOSPHAMIDE. [Concomitant]
     Active Substance: CYCLOPHOSPHAMIDE
     Dosage: 400 MILLIGRAM (400 MG (D 1?4)
     Route: 042

REACTIONS (4)
  - Quadriplegia [Fatal]
  - Respiratory failure [Fatal]
  - Encephalopathy [Fatal]
  - Diabetes insipidus [Fatal]
